FAERS Safety Report 9104165 (Version 2)
Quarter: 2013Q2

REPORT INFORMATION
  Report Type: Report from Study
  Country: BR (occurrence: BR)
  Receive Date: 20130219
  Receipt Date: 20130425
  Transmission Date: 20140414
  Serious: Yes (Hospitalization, Other)
  Sender: FDA-Public Use
  Company Number: PHHY2013BR016210

PATIENT
  Sex: Female
  Weight: 79 kg

DRUGS (6)
  1. EXELON PATCH [Suspect]
     Indication: DEMENTIA ALZHEIMER^S TYPE
     Dosage: 4.6 MG (PATCH 5), DAILY
     Route: 062
     Dates: start: 201204
  2. EXELON [Suspect]
     Indication: DEMENTIA ALZHEIMER^S TYPE
     Dosage: 2 DF, UNK
     Route: 048
     Dates: start: 2011
  3. PANTOPRAZOLE [Concomitant]
     Indication: GASTRITIS
     Dosage: 20 MG, UNK
     Route: 048
  4. SERTRALINE HYDROCHLORIDE [Concomitant]
     Indication: DEPRESSION
     Dosage: 50 MG, UNK
     Route: 048
  5. CARVEDILOL [Concomitant]
     Indication: CARDIAC DISORDER
     Dosage: 2 DF, UNK
     Route: 048
  6. SPIRONOLACTON [Concomitant]
     Indication: POLYURIA
     Dosage: UNK UKN, UNK
     Route: 048

REACTIONS (8)
  - Pneumonia [Recovered/Resolved]
  - Respiratory failure [Not Recovered/Not Resolved]
  - Pleural effusion [Recovered/Resolved]
  - Urinary tract infection [Recovered/Resolved]
  - Screaming [Unknown]
  - Viral infection [Unknown]
  - Pain [Unknown]
  - Asthenia [Unknown]
